FAERS Safety Report 23188491 (Version 2)
Quarter: 2023Q4

REPORT INFORMATION
  Report Type: Spontaneous
  Country: US (occurrence: US)
  Receive Date: 20231115
  Receipt Date: 20231120
  Transmission Date: 20240110
  Serious: Yes (Other)
  Sender: FDA-Public Use
  Company Number: US-PFIZER INC-PV202300093855

PATIENT
  Age: 88 Year
  Sex: Male
  Weight: 74.83 kg

DRUGS (2)
  1. BRAFTOVI [Suspect]
     Active Substance: ENCORAFENIB
     Indication: Colon cancer metastatic
     Dosage: 300 MG, DAILY (TAKE 4 CAPSULES)
     Route: 048
     Dates: start: 20230601
  2. CETUXIMAB [Suspect]
     Active Substance: CETUXIMAB
     Dosage: UNK
     Dates: start: 20230601

REACTIONS (13)
  - Second primary malignancy [Unknown]
  - Squamous cell carcinoma of skin [Unknown]
  - Basal cell carcinoma [Unknown]
  - Off label use [Unknown]
  - Skin irritation [Unknown]
  - Bowel movement irregularity [Unknown]
  - Fatigue [Unknown]
  - Flushing [Recovered/Resolved]
  - Rash [Recovered/Resolved]
  - Haemoglobin decreased [Unknown]
  - Constipation [Unknown]
  - Hypomagnesaemia [Unknown]
  - Faeces soft [Unknown]

NARRATIVE: CASE EVENT DATE: 20230101
